FAERS Safety Report 7223659 (Version 11)
Quarter: 2013Q2

REPORT INFORMATION
  Report Type: Spontaneous
  Country: US (occurrence: US)
  Receive Date: 20051018
  Receipt Date: 20130617
  Transmission Date: 20140414
  Serious: Yes (Hospitalization, Other)
  Sender: FDA-Public Use
  Company Number: US-BIOGENIDEC-2005BI018531

PATIENT
  Sex: Female
  Weight: 55 kg

DRUGS (3)
  1. AVONEX [Suspect]
     Indication: MULTIPLE SCLEROSIS
     Route: 030
     Dates: start: 200103, end: 200409
  2. AVONEX [Suspect]
     Indication: MULTIPLE SCLEROSIS
     Route: 030
     Dates: start: 200409, end: 20091218
  3. AVONEX [Suspect]
     Indication: MULTIPLE SCLEROSIS
     Route: 030
     Dates: start: 20100205

REACTIONS (7)
  - Ovarian cancer stage II [Recovered/Resolved]
  - Ovarian cancer recurrent [Recovered/Resolved]
  - Neoplasm [Unknown]
  - Blister [Not Recovered/Not Resolved]
  - Oral mucosal blistering [Not Recovered/Not Resolved]
  - Venous injury [Not Recovered/Not Resolved]
  - Pruritus [Unknown]
